FAERS Safety Report 14605020 (Version 1)
Quarter: 2018Q1

REPORT INFORMATION
  Report Type: Spontaneous
  Country: US (occurrence: US)
  Receive Date: 20180306
  Receipt Date: 20180306
  Transmission Date: 20180509
  Serious: Yes (Other)
  Sender: FDA-Public Use
  Company Number: None

PATIENT
  Age: 25 Year
  Sex: Female
  Weight: 52.65 kg

DRUGS (1)
  1. PARAGARD T 380A [Suspect]
     Active Substance: COPPER
     Indication: CONTRACEPTION
     Dosage: ?          QUANTITY:1 UNIT;OTHER FREQUENCY:YEARS;?
     Route: 067
     Dates: start: 20161116, end: 20170614

REACTIONS (6)
  - Palpitations [None]
  - Restlessness [None]
  - Anxiety [None]
  - Paranoia [None]
  - Tremor [None]
  - Personality change [None]

NARRATIVE: CASE EVENT DATE: 20161116
